FAERS Safety Report 8557800-6 (Version None)
Quarter: 2012Q3

REPORT INFORMATION
  Report Type: 
  Country: None (occurrence: None)
  Receive Date: 20120801
  Receipt Date: 20120724
  Transmission Date: 20120928
  Serious: Yes (Other)
  Sender: FDA-Public Use
  Company Number: US-ABBOTT-12P-163-0948933-00

PATIENT
  Sex: Female
  Weight: 61.29 kg

DRUGS (9)
  1. HUMIRA [Suspect]
     Indication: RHEUMATOID ARTHRITIS
     Route: 058
     Dates: start: 20110106, end: 20120322
  2. METHOTREXATE [Concomitant]
     Indication: RHEUMATOID ARTHRITIS
     Dosage: ONGOING AT TIME OF DIAGNOSIS
     Route: 048
     Dates: start: 20101118, end: 20120322
  3. OXYCOTNE [Concomitant]
     Indication: PAIN
     Dosage: 5MG, Q4-6 HRS, PRN
  4. FOLIC ACID [Concomitant]
     Indication: PRODUCT USED FOR UNKNOWN INDICATION
     Dosage: 1MG DAILY
     Route: 048
     Dates: start: 20101118, end: 20120322
  5. CLONAZEPAM [Concomitant]
     Indication: RESTLESS LEGS SYNDROME
  6. METHOTREXATE [Concomitant]
     Dates: start: 20110101, end: 20120401
  7. CALCIUM [Concomitant]
     Indication: PRODUCT USED FOR UNKNOWN INDICATION
  8. PROGESTERONE [Concomitant]
     Indication: MENOPAUSE
     Dates: start: 19920101, end: 20120401
  9. ESTRADIOL [Concomitant]
     Indication: MENOPAUSE
     Dates: start: 19920101, end: 20120401

REACTIONS (4)
  - POST PROCEDURAL HAEMORRHAGE [None]
  - MAMMOGRAM ABNORMAL [None]
  - BREAST HYPERPLASIA [None]
  - BREAST CANCER [None]
